FAERS Safety Report 18636520 (Version 1)
Quarter: 2020Q4

REPORT INFORMATION
  Report Type: Spontaneous
  Country: US (occurrence: US)
  Receive Date: 20201218
  Receipt Date: 20201218
  Transmission Date: 20210114
  Serious: Yes (Other)
  Sender: FDA-Public Use
  Company Number: US-PURDUE-USA-2020-0159123

PATIENT
  Age: 29 Year
  Sex: Female

DRUGS (7)
  1. NORCO [Suspect]
     Active Substance: ACETAMINOPHEN\HYDROCODONE BITARTRATE
     Indication: PRODUCT USED FOR UNKNOWN INDICATION
     Dosage: UNK
     Route: 048
  2. CYANOCOBALAMIN. [Concomitant]
     Active Substance: CYANOCOBALAMIN
     Indication: PRODUCT USED FOR UNKNOWN INDICATION
     Dosage: 1000 MCG/ML, WEEKLY
     Route: 065
     Dates: start: 20071003, end: 20090518
  3. ADACEL TDAP [Concomitant]
     Active Substance: TETANUS TOXOID, REDUCED DIPHTHERIA TOXOID AND ACELLULAR PERTUSSIS VACCINE ADSORBED, TDAP
     Indication: PRODUCT USED FOR UNKNOWN INDICATION
     Dosage: UNK
     Route: 065
     Dates: start: 20081006
  4. HYDROCODONE BITARTRATE AND ACETAMINOPHEN [Suspect]
     Active Substance: ACETAMINOPHEN\HYDROCODONE BITARTRATE
     Indication: PRODUCT USED FOR UNKNOWN INDICATION
     Dosage: 10/325 MG, QID PRN
     Route: 048
     Dates: start: 20071003, end: 20071017
  5. HYDROCODONE BITARTRATE AND ACETAMINOPHEN [Suspect]
     Active Substance: ACETAMINOPHEN\HYDROCODONE BITARTRATE
     Dosage: 10/325 MG, QID PRN
     Route: 048
     Dates: start: 20071106, end: 20071116
  6. LISINOPRIL AND HYDROCHLOROTHIAZIDE [Concomitant]
     Active Substance: HYDROCHLOROTHIAZIDE\LISINOPRIL
     Indication: PRODUCT USED FOR UNKNOWN INDICATION
     Dosage: 10/12.5MG
     Route: 065
     Dates: start: 20071003, end: 20071006
  7. HYDROCODONE BITARTRATE AND ACETAMINOPHEN [Suspect]
     Active Substance: ACETAMINOPHEN\HYDROCODONE BITARTRATE
     Dosage: 10/325 MG, QID PRN
     Route: 048
     Dates: start: 20071116, end: 20071127

REACTIONS (17)
  - Vitamin D deficiency [Unknown]
  - Copper deficiency [Unknown]
  - Migraine [Unknown]
  - Hepatic steatosis [Unknown]
  - Hyperparathyroidism [Unknown]
  - Neuropathy peripheral [Unknown]
  - Pelvic pain [Unknown]
  - Affective disorder [Unknown]
  - Overdose [Unknown]
  - Bipolar II disorder [Unknown]
  - Attention deficit hyperactivity disorder [Unknown]
  - Hypertension [Unknown]
  - Insomnia [Unknown]
  - Dependence [Unknown]
  - Nausea [Unknown]
  - Anxiety [Unknown]
  - Pain [Unknown]

NARRATIVE: CASE EVENT DATE: 20071019
